FAERS Safety Report 5519934-X (Version None)
Quarter: 2007Q4

REPORT INFORMATION
  Report Type: 
  Country: None (occurrence: None)
  Receive Date: 20071116
  Receipt Date: 20071112
  Transmission Date: 20080405
  Serious: Yes (Death, Other)
  Sender: FDA-Public Use
  Company Number: AU-ASTRAZENECA-2007AP05695

PATIENT
  Age: 26137 Day
  Sex: Female

DRUGS (11)
  1. CRESTOR [Suspect]
     Route: 048
     Dates: start: 20061215, end: 20070731
  2. EZETROL [Suspect]
     Indication: HYPERCHOLESTEROLAEMIA
     Dates: end: 20070731
  3. ASTRIX [Concomitant]
     Indication: THROMBOSIS PROPHYLAXIS
     Route: 048
     Dates: end: 20070731
  4. IKOREL [Concomitant]
     Indication: MYOCARDIAL ISCHAEMIA
     Route: 048
     Dates: end: 20070807
  5. IKOREL [Concomitant]
     Route: 048
     Dates: start: 20070811
  6. IKOREL [Concomitant]
     Dosage: DOSE INCREASED
     Route: 048
     Dates: start: 20070815
  7. IMDUR [Concomitant]
     Indication: MYOCARDIAL ISCHAEMIA
     Route: 048
     Dates: end: 20070731
  8. NORVASC [Concomitant]
     Indication: MYOCARDIAL ISCHAEMIA
     Route: 048
     Dates: end: 20070731
  9. NORVASC [Concomitant]
     Route: 048
     Dates: start: 20070810
  10. NORVASC [Concomitant]
     Dosage: DOSE INCREASED
     Route: 048
     Dates: start: 20070815
  11. FERROGRADUMET [Concomitant]
     Indication: ANAEMIA
     Route: 048
     Dates: end: 20070820

REACTIONS (11)
  - ATRIAL FIBRILLATION [None]
  - CHEST PAIN [None]
  - DYSPNOEA [None]
  - HAEMATEMESIS [None]
  - HAEMOGLOBIN DECREASED [None]
  - LETHARGY [None]
  - MELAENA [None]
  - PNEUMONIA [None]
  - RENAL FAILURE ACUTE [None]
  - RESPIRATORY FAILURE [None]
  - RHABDOMYOLYSIS [None]
